FAERS Safety Report 4630511-5 (Version None)
Quarter: 2005Q2

REPORT INFORMATION
  Report Type: 
  Country: None (occurrence: None)
  Receive Date: 20050406
  Receipt Date: 20050317
  Transmission Date: 20051028
  Serious: Yes (Other)
  Sender: FDA-Public Use
  Company Number: US_0412109602

PATIENT
  Age: 75 Year
  Sex: Female

DRUGS (1)
  1. EVISTA [Suspect]
     Dates: start: 20030101

REACTIONS (1)
  - RETINAL VASCULAR THROMBOSIS [None]
